FAERS Safety Report 17749619 (Version 1)
Quarter: 2020Q2

REPORT INFORMATION
  Report Type: Spontaneous
  Country: US (occurrence: US)
  Receive Date: 20200506
  Receipt Date: 20200506
  Transmission Date: 20200714
  Serious: No
  Sender: FDA-Public Use
  Company Number: US-MICRO LABS LIMITED-ML2020-01083

PATIENT
  Age: 85 Year
  Sex: Male
  Weight: 77.18 kg

DRUGS (1)
  1. DORZOLAMIDE HCL OPHTHALMIC SOLUTION 2% [Suspect]
     Active Substance: DORZOLAMIDE HYDROCHLORIDE
     Dates: start: 202003

REACTIONS (1)
  - Faeces discoloured [Not Recovered/Not Resolved]
